FAERS Safety Report 8183534-6 (Version None)
Quarter: 2012Q1

REPORT INFORMATION
  Report Type: 
  Country: None (occurrence: None)
  Receive Date: 20120305
  Receipt Date: 20120222
  Transmission Date: 20120608
  Serious: Yes (Hospitalization, Other)
  Sender: FDA-Public Use
  Company Number: US-ELI_LILLY_AND_COMPANY-US201201000532

PATIENT
  Sex: Female

DRUGS (7)
  1. COUMADIN [Concomitant]
  2. CALCIUM [Concomitant]
     Dosage: 600 MG, OTHER
  3. FORTEO [Suspect]
     Indication: OSTEOPOROSIS
     Dosage: 20 UG, QD
     Route: 065
     Dates: start: 20110901
  4. IRON [Concomitant]
  5. VITAMIN D [Concomitant]
  6. SYNTHROID [Concomitant]
     Dosage: UNK, QD
  7. CALCIUM CARBONATE [Concomitant]

REACTIONS (9)
  - HEART RATE IRREGULAR [None]
  - ADVERSE DRUG REACTION [None]
  - OEDEMA PERIPHERAL [None]
  - LYMPHOEDEMA [None]
  - OVERDOSE [None]
  - HOSPITALISATION [None]
  - ATRIAL FIBRILLATION [None]
  - ERYTHEMA [None]
  - FEAR [None]
